FAERS Safety Report 9543396 (Version 1)
Quarter: 2013Q3

REPORT INFORMATION
  Report Type: Spontaneous
  Country: VE (occurrence: VE)
  Receive Date: 20130923
  Receipt Date: 20130923
  Transmission Date: 20140515
  Serious: Yes (Other)
  Sender: FDA-Public Use
  Company Number: VE-PFIZER INC-2013270113

PATIENT
  Age: 77 Year
  Sex: Female

DRUGS (2)
  1. LIPITOR [Suspect]
     Dosage: 40 MG, 1X/DAY
  2. LYRICA [Concomitant]
     Dosage: 75 MG, UNK

REACTIONS (2)
  - Wrist fracture [Unknown]
  - Fall [Unknown]
